FAERS Safety Report 7682484-9 (Version None)
Quarter: 2011Q3

REPORT INFORMATION
  Report Type: 
  Country: None (occurrence: None)
  Receive Date: 20110815
  Receipt Date: 20110810
  Transmission Date: 20111222
  Serious: Yes (Life-Threatening, Hospitalization)
  Sender: FDA-Public Use
  Company Number: PHHY2011NL54782

PATIENT
  Sex: Male
  Weight: 90 kg

DRUGS (6)
  1. ZOMETA [Suspect]
     Indication: PROSTATE CANCER METASTATIC
     Dosage: 4 MG, EVERY 4 WEEKS
     Route: 042
     Dates: start: 20090401
  2. ACENOCOUMAROL [Concomitant]
     Dates: end: 20110607
  3. ZOMETA [Suspect]
     Dosage: 4 MG/5 ML, PER 42 DAYS
     Route: 042
     Dates: start: 20100830
  4. ZOMETA [Suspect]
     Dosage: 4 MG/5 ML, PER 42 DAYS
     Route: 042
     Dates: start: 20110509
  5. FRAGMIN [Concomitant]
     Indication: DEEP VEIN THROMBOSIS
     Dosage: 18000 IU, UNK
     Dates: start: 20110607
  6. ZOLADEX [Concomitant]

REACTIONS (8)
  - HYPERHIDROSIS [None]
  - PAIN IN EXTREMITY [None]
  - MYOCARDIAL INFARCTION [None]
  - CHEST PAIN [None]
  - ANGINA PECTORIS [None]
  - CHEST DISCOMFORT [None]
  - DYSPNOEA [None]
  - FATIGUE [None]
